FAERS Safety Report 8150003-9 (Version None)
Quarter: 2012Q1

REPORT INFORMATION
  Report Type: 
  Country: None (occurrence: None)
  Receive Date: 20120218
  Receipt Date: 20111221
  Transmission Date: 20120608
  Serious: No
  Sender: FDA-Public Use
  Company Number: US-ALLERGAN-1116704US

PATIENT
  Age: 61 Year
  Sex: Female
  Weight: 90.703 kg

DRUGS (3)
  1. LITHIUM CARBONATE [Concomitant]
     Indication: BIPOLAR DISORDER
  2. CLONIDINE [Concomitant]
     Indication: BLOOD PRESSURE INCREASED
  3. BOTULINUM TOXIN TYPE A [Suspect]
     Indication: MIGRAINE
     Dosage: UNK
     Route: 030
     Dates: start: 20110927

REACTIONS (4)
  - INFLUENZA LIKE ILLNESS [None]
  - INJECTION SITE PAIN [None]
  - ARTHRALGIA [None]
  - PHOTOPHOBIA [None]
